FAERS Safety Report 16034901 (Version 3)
Quarter: 2019Q2

REPORT INFORMATION
  Report Type: Spontaneous
  Country: FR (occurrence: FR)
  Receive Date: 20190305
  Receipt Date: 20190409
  Transmission Date: 20190711
  Serious: Yes (Other)
  Sender: FDA-Public Use
  Company Number: FR-GLAXOSMITHKLINE-FR2018GSK237128

PATIENT
  Sex: Female
  Weight: 77 kg

DRUGS (44)
  1. NICOPATCH [Suspect]
     Active Substance: NICOTINE
     Indication: EX-TOBACCO USER
     Dosage: 7 MG, QD
     Route: 065
     Dates: start: 20170224, end: 20170516
  2. METFORMIN HYDROCHLORIDE. [Suspect]
     Active Substance: METFORMIN HYDROCHLORIDE
     Indication: TYPE 2 DIABETES MELLITUS
     Dosage: 1700 MG, QD
     Route: 048
     Dates: start: 20160930, end: 20170224
  3. FOLINIC ACID [Suspect]
     Active Substance: LEUCOVORIN
     Indication: NORMOCHROMIC NORMOCYTIC ANAEMIA
     Dosage: 5 MG, QD
     Route: 065
     Dates: start: 20170224, end: 20170313
  4. HUMALOG [Suspect]
     Active Substance: INSULIN LISPRO
     Indication: TYPE 2 DIABETES MELLITUS
     Dosage: 21 ?G/M2, UNK
     Route: 065
     Dates: start: 20170214
  5. LEVEMIR [Suspect]
     Active Substance: INSULIN DETEMIR
     Indication: TYPE 2 DIABETES MELLITUS
     Dosage: 10 IU, QD
     Route: 065
     Dates: start: 20170224
  6. LARGACTIL [Suspect]
     Active Substance: CHLORPROMAZINE
     Indication: BIPOLAR I DISORDER
     Dosage: 25 MG, QD
     Route: 065
     Dates: start: 20170722
  7. LOXEN (NICARDIPINE HYDROCHLORIDE) [Suspect]
     Active Substance: NICARDIPINE HYDROCHLORIDE
     Dosage: 1 DF, UNK
     Route: 065
     Dates: start: 20170313, end: 20180405
  8. DIFFU K [Suspect]
     Active Substance: POTASSIUM CHLORIDE
     Dosage: 1200 MG, UNK
     Route: 065
  9. LABETALOL HYDROCHLORIDE. [Suspect]
     Active Substance: LABETALOL HYDROCHLORIDE
     Indication: HYPERTENSION
     Dosage: 80 MG, QD
     Route: 048
     Dates: start: 20170516
  10. LARGACTIL [Suspect]
     Active Substance: CHLORPROMAZINE
     Dosage: 0.5 DF, UNK
     Route: 065
  11. GLICLAZIDE [Suspect]
     Active Substance: GLICLAZIDE
     Indication: TYPE 2 DIABETES MELLITUS
     Dosage: 120 MG, QD
     Route: 065
     Dates: start: 20160930
  12. FUROSEMIDE. [Suspect]
     Active Substance: FUROSEMIDE
     Indication: HYPERTENSION
     Dosage: 40 MG, UNK
     Route: 065
  13. FOLINIC ACID [Suspect]
     Active Substance: LEUCOVORIN
     Dosage: 5 MG, QD
     Route: 065
     Dates: start: 20170313
  14. PROPRANOLOL HYDROCHLORIDE. [Suspect]
     Active Substance: PROPRANOLOL HYDROCHLORIDE
     Indication: HYPERTENSION
     Dosage: 80 MG, 1D (1 IN 1 D)
     Route: 065
     Dates: start: 20170516
  15. LANTUS [Suspect]
     Active Substance: INSULIN GLARGINE
     Indication: TYPE 2 DIABETES MELLITUS
     Dosage: 20 IU, QD
     Route: 048
     Dates: start: 20170224
  16. LAROXYL [Suspect]
     Active Substance: AMITRIPTYLINE HYDROCHLORIDE
     Indication: DIABETIC NEUROPATHY
     Dosage: 2 DF, QD
     Route: 065
     Dates: start: 20160930
  17. LAROXYL [Suspect]
     Active Substance: AMITRIPTYLINE HYDROCHLORIDE
     Dosage: 2 DF, QD
     Route: 065
     Dates: start: 20170914
  18. AMOXICILLIN. [Suspect]
     Active Substance: AMOXICILLIN
     Indication: PRODUCT USED FOR UNKNOWN INDICATION
     Dosage: 3 G, QD
     Route: 048
     Dates: start: 20170804, end: 20170811
  19. AMOXICILLIN. [Suspect]
     Active Substance: AMOXICILLIN
     Dosage: 1 G, 1D
     Route: 048
     Dates: start: 20170811
  20. FUROSEMIDE. [Suspect]
     Active Substance: FUROSEMIDE
     Dosage: 50 MG, UNK
     Route: 065
  21. NICARDIPINE HYDROCHLORIDE. [Suspect]
     Active Substance: NICARDIPINE HYDROCHLORIDE
     Indication: HYPERTENSION
     Dosage: 50 MG, UNK
     Route: 065
     Dates: start: 20170914
  22. NICARDIPINE HYDROCHLORIDE. [Suspect]
     Active Substance: NICARDIPINE HYDROCHLORIDE
     Dosage: 50 MG, UNK
     Route: 065
     Dates: start: 20170405
  23. GABAPENTIN. [Suspect]
     Active Substance: GABAPENTIN
     Dosage: 80 MG, QD
     Route: 048
     Dates: start: 20160930
  24. TRAMADOL HYDROCHLORIDE. [Suspect]
     Active Substance: TRAMADOL HYDROCHLORIDE
     Indication: DIABETIC NEUROPATHY
     Dosage: 100 MG, QD
     Route: 065
     Dates: start: 20160930, end: 20170306
  25. LOXEN (NICARDIPINE HYDROCHLORIDE) [Suspect]
     Active Substance: NICARDIPINE HYDROCHLORIDE
     Indication: HYPERTENSION
     Dosage: 50 MG, UNK
     Route: 065
  26. TARDYFERON (FERROSI SULFAS) [Suspect]
     Active Substance: FERROUS SULFATE
     Indication: NORMOCHROMIC NORMOCYTIC ANAEMIA
     Dosage: 1 DF, QD
     Route: 065
     Dates: start: 20170313
  27. DIFFU K [Suspect]
     Active Substance: POTASSIUM CHLORIDE
     Indication: HYPOKALAEMIA
     Dosage: 3600 MG, QD
     Route: 065
     Dates: start: 20180804
  28. LASIX [Suspect]
     Active Substance: FUROSEMIDE
     Indication: PRODUCT USED FOR UNKNOWN INDICATION
     Dosage: 50 MG, QD, (SCORED TABLET)
     Route: 065
     Dates: start: 20170516
  29. LASIX [Suspect]
     Active Substance: FUROSEMIDE
     Dosage: 40 MG, QD, (SCORED TABLET)
     Route: 065
  30. FERROUS SULFATE. [Suspect]
     Active Substance: FERROUS SULFATE
     Indication: NORMOCHROMIC NORMOCYTIC ANAEMIA
     Dosage: 1 DF, UNK
     Route: 065
     Dates: start: 20170313
  31. POTASSIUM CHLORIDE. [Suspect]
     Active Substance: POTASSIUM CHLORIDE
     Indication: HYPOKALAEMIA
     Dosage: 1200 MG, QD
     Route: 065
     Dates: start: 20170804
  32. MACROGOL [Suspect]
     Active Substance: POLYETHYLENE GLYCOLS
     Indication: CONSTIPATION
     Dosage: 1 DF, QD
     Route: 065
     Dates: start: 20160930, end: 20170405
  33. HUMALOG [Suspect]
     Active Substance: INSULIN LISPRO
     Dosage: 21 UG/M2, QD
     Route: 065
     Dates: start: 20170228
  34. METHYLDOPA. [Suspect]
     Active Substance: METHYLDOPA
     Indication: HYPERTENSION
     Dosage: 1500 MG, QD
     Route: 065
     Dates: start: 20170720
  35. TRAMADOL HYDROCHLORIDE. [Suspect]
     Active Substance: TRAMADOL HYDROCHLORIDE
     Dosage: 50 MG, QD
     Route: 065
     Dates: start: 20160930
  36. FOLIC ACID. [Suspect]
     Active Substance: FOLIC ACID
     Indication: NORMOCHROMIC NORMOCYTIC ANAEMIA
     Dosage: 5 MG, QD
     Route: 065
     Dates: start: 20170313
  37. RAMIPRIL. [Suspect]
     Active Substance: RAMIPRIL
     Indication: HYPERTENSION
     Dosage: 2.5 MG, QD
     Route: 048
     Dates: start: 20170224
  38. GABAPENTIN. [Suspect]
     Active Substance: GABAPENTIN
     Indication: DIABETIC NEUROPATHY
     Dosage: 400 MG, QD
     Route: 048
     Dates: start: 20160930
  39. GLICLAZIDE [Suspect]
     Active Substance: GLICLAZIDE
     Dosage: 120 MG, QD
     Route: 065
     Dates: start: 20170224
  40. METFORMIN HYDROCHLORIDE. [Suspect]
     Active Substance: METFORMIN HYDROCHLORIDE
     Dosage: 850 MG, UNK
     Route: 048
     Dates: start: 20170224
  41. GABAPENTIN. [Suspect]
     Active Substance: GABAPENTIN
     Dosage: 800 MG, 1D
     Route: 048
     Dates: start: 20160930
  42. ARIPIPRAZOLE. [Suspect]
     Active Substance: ARIPIPRAZOLE
     Indication: BIPOLAR I DISORDER
     Dosage: 10 MG, QD
     Route: 065
     Dates: start: 20160930, end: 20170224
  43. CHLORPROMAZINE HYDROCHLORIDE. [Suspect]
     Active Substance: CHLORPROMAZINE HYDROCHLORIDE
     Indication: BIPOLAR I DISORDER
     Dosage: 25 MG, QD
     Dates: start: 20170720
  44. INSULIN PORCINE [Suspect]
     Active Substance: INSULIN PORK\INSULIN PURIFIED PORK
     Indication: TYPE 2 DIABETES MELLITUS
     Dosage: UNK
     Dates: start: 20160930, end: 20170224

REACTIONS (4)
  - Exposure during pregnancy [Recovered/Resolved]
  - Off label use [Unknown]
  - Premature delivery [Not Recovered/Not Resolved]
  - Contraindicated product administered [Unknown]

NARRATIVE: CASE EVENT DATE: 20170914
